FAERS Safety Report 5926923-X (Version None)
Quarter: 2008Q4

REPORT INFORMATION
  Report Type: 
  Country: None (occurrence: None)
  Receive Date: 20081017
  Receipt Date: 20081002
  Transmission Date: 20090506
  Serious: Yes (Hospitalization)
  Sender: FDA-Public Use
  Company Number: 2008BI025912

PATIENT
  Age: 21 Year
  Sex: Female

DRUGS (3)
  1. TYSABRI [Suspect]
     Indication: MULTIPLE SCLEROSIS
     Dosage: 300 MG;QM;IV
     Route: 042
     Dates: start: 20080519
  2. . [Concomitant]
  3. . [Concomitant]

REACTIONS (5)
  - BLINDNESS [None]
  - BLOOD PRESSURE INCREASED [None]
  - DIPLOPIA [None]
  - THROAT IRRITATION [None]
  - VISUAL IMPAIRMENT [None]
